FAERS Safety Report 13687385 (Version 1)
Quarter: 2017Q2

REPORT INFORMATION
  Report Type: Spontaneous
  Country: US (occurrence: US)
  Receive Date: 20170624
  Receipt Date: 20170624
  Transmission Date: 20170830
  Serious: Yes (Other)
  Sender: FDA-Public Use
  Company Number: US-GLENMARK PHARMACEUTICALS-2017GMK027933

PATIENT
  Age: 29 Year
  Sex: Female
  Weight: 87 kg

DRUGS (10)
  1. LIDOCAINE AND EPINEPHRINE [Suspect]
     Active Substance: EPINEPHRINE\LIDOCAINE HYDROCHLORIDE
     Indication: PRODUCT USED FOR UNKNOWN INDICATION
     Dosage: 3 ML, UNK
     Route: 065
  2. FENTANYL. [Suspect]
     Active Substance: FENTANYL
     Dosage: 2.5 ?G/ML?BOLUS ? A MAXIMUM BOLUS FREQUENCY 3/HR
     Route: 008
  3. BUPIVACAINE W/FENTANYL [Suspect]
     Active Substance: BUPIVACAINE\FENTANYL
     Indication: PRODUCT USED FOR UNKNOWN INDICATION
     Dosage: 0.5 ML OF 0.25% BUPIVACAINE AND 0.3 ML OF FENTANYL 50?G/ML
     Route: 037
  4. BUPIVACAINE. [Suspect]
     Active Substance: BUPIVACAINE
     Indication: PRODUCT USED FOR UNKNOWN INDICATION
     Dosage: 6 ML/H WITH A BOLUS OF 6 ML, A LOCKOUT PERIOD OF 10 MINUTES
     Route: 008
  5. FENTANYL. [Suspect]
     Active Substance: FENTANYL
     Dosage: 50 MICRO GRAM /ML
     Route: 037
  6. LIDOCAINE. [Suspect]
     Active Substance: LIDOCAINE
     Indication: PRODUCT USED FOR UNKNOWN INDICATION
     Dosage: 2 ML, UNK
     Route: 037
  7. BUPIVACAINE. [Suspect]
     Active Substance: BUPIVACAINE
     Dosage: 0.5 UNK, UNK
     Route: 037
  8. CHLORHEXIDINE [Concomitant]
     Active Substance: CHLORHEXIDINE
     Indication: PRODUCT USED FOR UNKNOWN INDICATION
     Dosage: UNK
     Route: 065
  9. BUPIVACAINE. [Suspect]
     Active Substance: BUPIVACAINE
     Dosage: MAXIMUM BOLUS FREQUENCY OF 3 BOLUSES PER HOUR
     Route: 008
  10. FENTANYL. [Suspect]
     Active Substance: FENTANYL
     Indication: PRODUCT USED FOR UNKNOWN INDICATION
     Dosage: 2.5 ?G/ML
     Route: 065

REACTIONS (8)
  - Palpitations [Recovering/Resolving]
  - Toxicity to various agents [Recovering/Resolving]
  - Feeling abnormal [Recovering/Resolving]
  - Maternal exposure during pregnancy [Recovered/Resolved]
  - Dysgeusia [Recovering/Resolving]
  - Sinus tachycardia [Recovering/Resolving]
  - Accidental exposure to product [Recovering/Resolving]
  - Tinnitus [Recovering/Resolving]
